FAERS Safety Report 23377464 (Version 1)
Quarter: 2024Q1

REPORT INFORMATION
  Report Type: Spontaneous
  Country: US (occurrence: US)
  Receive Date: 20240108
  Receipt Date: 20240108
  Transmission Date: 20240410
  Serious: Yes (Other)
  Sender: FDA-Public Use
  Company Number: US-PFIZER INC-PV202300061782

PATIENT

DRUGS (2)
  1. ENTRESTO [Suspect]
     Active Substance: SACUBITRIL\VALSARTAN
     Indication: Product used for unknown indication
     Dosage: UNK
     Route: 065
  2. TORSEMIDE [Suspect]
     Active Substance: TORSEMIDE
     Indication: Product used for unknown indication
     Route: 065

REACTIONS (10)
  - Cardiomyopathy [Unknown]
  - Bundle branch block left [Unknown]
  - Atrial fibrillation [Unknown]
  - Cerebrovascular accident [Unknown]
  - Cardiac amyloidosis [Unknown]
  - Hypothyroidism [Unknown]
  - Leukopenia [Unknown]
  - Weight decreased [Unknown]
  - Brain natriuretic peptide increased [Unknown]
  - Hypotension [Unknown]

NARRATIVE: CASE EVENT DATE: 20211001
